FAERS Safety Report 16406659 (Version 1)
Quarter: 2019Q2

REPORT INFORMATION
  Report Type: Spontaneous
  Country: CN (occurrence: CN)
  Receive Date: 20190607
  Receipt Date: 20190607
  Transmission Date: 20190711
  Serious: Yes (Death, Hospitalization, Other)
  Sender: FDA-Public Use
  Company Number: CN-009507513-1906CHN000236

PATIENT
  Age: 54 Year
  Sex: Male

DRUGS (11)
  1. DOPAMINE HYDROCHLORIDE. [Suspect]
     Active Substance: DOPAMINE HYDROCHLORIDE
     Dosage: 18 MILLILITER, PRN
     Dates: start: 201902, end: 201902
  2. NOREPINEPHRINE BITARTRATE. [Suspect]
     Active Substance: NOREPINEPHRINE BITARTRATE
     Dosage: 9 MILLILITER, PRN
     Dates: start: 201902, end: 201902
  3. PIPERACILLIN SODIUM [Suspect]
     Active Substance: PIPERACILLIN SODIUM
     Dosage: UNK
     Dates: start: 201902, end: 201902
  4. MEROPENEM. [Suspect]
     Active Substance: MEROPENEM
     Dosage: 1000 MILLIGRAM, Q12H (CONTINUOUS MICROPUMP INPUT)
     Dates: start: 20190217, end: 20190220
  5. CASPOFUNGIN ACETATE. [Suspect]
     Active Substance: CASPOFUNGIN ACETATE
     Indication: INFECTION
     Dosage: 50 MILLIGRAM, QD
     Route: 041
     Dates: start: 20190212, end: 20190220
  6. TAZOBACTAM SODIUM [Suspect]
     Active Substance: TAZOBACTAM SODIUM
     Dosage: 4.5 GRAM, Q6H
     Route: 041
     Dates: start: 20190211, end: 20190215
  7. SUFENTANIL CITRATE. [Suspect]
     Active Substance: SUFENTANIL CITRATE
     Dosage: 2 MILLILITER, PRN
     Dates: start: 201902, end: 201902
  8. TAZOBACTAM SODIUM [Suspect]
     Active Substance: TAZOBACTAM SODIUM
     Dosage: 2.25 GRAM, Q6H (DROPS)
     Route: 041
     Dates: start: 20190215, end: 20190217
  9. PROPOFOL. [Suspect]
     Active Substance: PROPOFOL
     Dosage: 40 MILLILITER, PRN
     Dates: start: 201902, end: 201902
  10. PANTOPRAZOLE SODIUM. [Suspect]
     Active Substance: PANTOPRAZOLE SODIUM
     Dosage: 40 MILLIGRAM, Q12H
     Route: 041
     Dates: start: 201902, end: 201902
  11. LINEZOLID. [Suspect]
     Active Substance: LINEZOLID
     Dosage: 300 MILLILITER, Q12H
     Route: 041
     Dates: start: 20190214, end: 20190220

REACTIONS (2)
  - Acinetobacter test positive [Unknown]
  - Death [Fatal]

NARRATIVE: CASE EVENT DATE: 20190220
